FAERS Safety Report 25100444 (Version 1)
Quarter: 2025Q1

REPORT INFORMATION
  Report Type: Spontaneous
  Country: FR (occurrence: FR)
  Receive Date: 20250320
  Receipt Date: 20250320
  Transmission Date: 20250409
  Serious: No
  Sender: PFIZER
  Company Number: FR-PFIZER INC-PV202500032337

PATIENT

DRUGS (1)
  1. SOMATROGON [Suspect]
     Active Substance: SOMATROGON

REACTIONS (1)
  - Injection site pain [Unknown]
